FAERS Safety Report 8300973-0 (Version None)
Quarter: 2012Q2

REPORT INFORMATION
  Report Type: 
  Country: None (occurrence: None)
  Receive Date: 20120420
  Receipt Date: 20120411
  Transmission Date: 20120825
  Serious: Yes (Other)
  Sender: FDA-Public Use
  Company Number: ES-BRISTOL-MYERS SQUIBB COMPANY-16513368

PATIENT
  Age: 58 Year
  Sex: Female

DRUGS (3)
  1. TAXOL [Suspect]
     Indication: OVARIAN CANCER
     Route: 042
     Dates: start: 20110926
  2. CARBOPLATIN [Suspect]
     Indication: OVARIAN CANCER
     Route: 042
     Dates: start: 20110926
  3. ZOFRAN [Concomitant]
     Indication: NAUSEA
     Route: 042
     Dates: start: 20110926

REACTIONS (9)
  - VISUAL IMPAIRMENT [None]
  - ERYTHEMA MULTIFORME [None]
  - MUSCULOSKELETAL STIFFNESS [None]
  - MALAISE [None]
  - PRURITUS [None]
  - NAUSEA [None]
  - GENITAL PAIN [None]
  - PARAESTHESIA [None]
  - DIZZINESS [None]
